FAERS Safety Report 18096645 (Version 1)
Quarter: 2020Q3

REPORT INFORMATION
  Report Type: Spontaneous
  Country: GB (occurrence: GB)
  Receive Date: 20200731
  Receipt Date: 20200731
  Transmission Date: 20201103
  Serious: Yes (Life-Threatening, Hospitalization)
  Sender: FDA-Public Use
  Company Number: GB-TEVA-2020-GB-1806322

PATIENT
  Age: 37 Year
  Sex: Female
  Weight: 67.3 kg

DRUGS (14)
  1. RAMIPRIL. [Concomitant]
     Active Substance: RAMIPRIL
     Indication: LEFT VENTRICULAR DYSFUNCTION
  2. BUPIVACAINE. [Concomitant]
     Active Substance: BUPIVACAINE
     Indication: ANAESTHESIA
     Dosage: WITH L?BUPIVAVAINE 0.25%, 40ML, INJECTION BETWEEN THE PECTORAL MUSCLES
  3. BISOPROLOL [Concomitant]
     Active Substance: BISOPROLOL
  4. IRON [Concomitant]
     Active Substance: IRON
  5. METHYLTHIONINIUM CHLORIDE [Suspect]
     Active Substance: METHYLENE BLUE
     Indication: BREAST OPERATION
     Route: 058
     Dates: start: 20190624, end: 20190624
  6. PROPOFOL. [Concomitant]
     Active Substance: PROPOFOL
  7. DEXAMETHASONE. [Concomitant]
     Active Substance: DEXAMETHASONE
  8. DICLOFENAC [Concomitant]
     Active Substance: DICLOFENAC
  9. PARACETAMOL [Concomitant]
     Active Substance: ACETAMINOPHEN
  10. MORPHINE [Concomitant]
     Active Substance: MORPHINE
  11. CO?AMOXICLAV [Suspect]
     Active Substance: AMOXICILLIN\CLAVULANATE POTASSIUM
     Route: 042
  12. AUGMENTIN [Concomitant]
     Active Substance: AMOXICILLIN\CLAVULANATE POTASSIUM
  13. ROCURONIUM BROMIDE. [Concomitant]
     Active Substance: ROCURONIUM BROMIDE
  14. FENTANYL. [Concomitant]
     Active Substance: FENTANYL

REACTIONS (2)
  - Anaphylactic shock [Recovered/Resolved]
  - Cardiovascular disorder [Unknown]

NARRATIVE: CASE EVENT DATE: 20190624
